FAERS Safety Report 9652551 (Version 1)
Quarter: 2013Q4

REPORT INFORMATION
  Report Type: Spontaneous
  Country: US (occurrence: None)
  Receive Date: 20131028
  Receipt Date: 20131028
  Transmission Date: 20140711
  Serious: Yes (Hospitalization)
  Sender: FDA-Public Use
  Company Number: None

PATIENT
  Age: 42 Year
  Sex: Female
  Weight: 115.67 kg

DRUGS (1)
  1. KOMBIGLYZE XR 2.5MG/1000MG BRISTOL-MYERS SQUIBB / ASTRAZENECA [Suspect]
     Indication: TYPE 2 DIABETES MELLITUS
     Dosage: 1 PILL TWICE DAILY TAKEN BY MOUTH
     Route: 048
     Dates: start: 20110301, end: 20131008

REACTIONS (1)
  - Pancreatic carcinoma [None]
